FAERS Safety Report 8828058 (Version 2)
Quarter: 2012Q4

REPORT INFORMATION
  Report Type: 
  Country: US (occurrence: US)
  Receive Date: 20121005
  Receipt Date: 20121115
  Transmission Date: 20130627
  Serious: No
  Sender: FDA-Public Use
  Company Number: US-JNJFOC-20120911637

PATIENT
  Sex: Male
  Weight: 73 kg

DRUGS (2)
  1. REMICADE [Suspect]
     Indication: COLITIS ULCERATIVE
     Dosage: before 2 mn TS
     Route: 042
  2. PENTASA [Concomitant]
     Indication: COLITIS ULCERATIVE
     Route: 065

REACTIONS (4)
  - Fall [Recovered/Resolved]
  - Migraine [Recovered/Resolved]
  - Abasia [Unknown]
  - Dizziness [Recovered/Resolved]
